FAERS Safety Report 9929723 (Version 1)
Quarter: 2014Q1

REPORT INFORMATION
  Report Type: Spontaneous
  Country: IN (occurrence: IN)
  Receive Date: 20140227
  Receipt Date: 20140227
  Transmission Date: 20141002
  Serious: Yes (Other)
  Sender: FDA-Public Use
  Company Number: IN-MYLANLABS-2014S1003720

PATIENT
  Age: 49 Year
  Sex: Male

DRUGS (3)
  1. PREDNISOLONE [Suspect]
     Indication: CROHN^S DISEASE
     Route: 065
  2. CICLOSPORIN [Suspect]
     Indication: CROHN^S DISEASE
     Route: 065
  3. INFLIXIMAB [Suspect]
     Indication: CROHN^S DISEASE
     Route: 065

REACTIONS (3)
  - Tuberculosis [Unknown]
  - Precursor B-lymphoblastic lymphoma [Unknown]
  - Intestinal obstruction [Unknown]
